FAERS Safety Report 24810491 (Version 1)
Quarter: 2025Q1

REPORT INFORMATION
  Report Type: Spontaneous
  Country: CN (occurrence: CN)
  Receive Date: 20250106
  Receipt Date: 20250106
  Transmission Date: 20250409
  Serious: Yes (Life-Threatening, Hospitalization)
  Sender: BAYER HEALTHCARE PHARMACEUTICALS INC.
  Company Number: CN-BAYER-2025A001752

PATIENT
  Age: 64 Year
  Sex: Male
  Weight: 75 kg

DRUGS (2)
  1. STIVARGA [Suspect]
     Active Substance: REGORAFENIB MONOHYDRATE
     Indication: Hepatic cancer
     Dosage: 120 MG, QD
     Route: 048
     Dates: start: 20240813, end: 20241205
  2. TISLELIZUMAB [Suspect]
     Active Substance: TISLELIZUMAB
     Indication: Hepatic cancer
     Dosage: 200 MG, QD, EVERY 3 WEEKS
     Route: 041
     Dates: start: 20240813

REACTIONS (3)
  - Platelet count decreased [Recovering/Resolving]
  - Incorrect dose administered [None]
  - Product prescribing issue [None]

NARRATIVE: CASE EVENT DATE: 20240101
